FAERS Safety Report 6636884-6 (Version None)
Quarter: 2010Q1

REPORT INFORMATION
  Report Type: 
  Country: None (occurrence: None)
  Receive Date: 20100316
  Receipt Date: 20100302
  Transmission Date: 20100710
  Serious: Yes (Hospitalization, Other)
  Sender: FDA-Public Use
  Company Number: PHEH2009US07836

PATIENT
  Sex: Female

DRUGS (2)
  1. ZELNORM [Suspect]
  2. ZOCOR [Concomitant]

REACTIONS (16)
  - ANGINA UNSTABLE [None]
  - ARTHRITIS [None]
  - CHEST PAIN [None]
  - CHOLECYSTECTOMY [None]
  - CHRONIC FATIGUE SYNDROME [None]
  - CORONARY ARTERIAL STENT INSERTION [None]
  - CORONARY ARTERY DISEASE [None]
  - DYSPEPSIA [None]
  - EMOTIONAL DISTRESS [None]
  - EPSTEIN-BARR VIRUS INFECTION [None]
  - FIBROMYALGIA [None]
  - GASTROOESOPHAGEAL REFLUX DISEASE [None]
  - HIATUS HERNIA [None]
  - INJURY [None]
  - MYOCARDIAL INFARCTION [None]
  - OESOPHAGOGASTRIC FUNDOPLASTY [None]
